FAERS Safety Report 4362486-0 (Version None)
Quarter: 2004Q2

REPORT INFORMATION
  Report Type: 
  Country: None (occurrence: None)
  Receive Date: 20040518
  Receipt Date: 20040503
  Transmission Date: 20050107
  Serious: No
  Sender: FDA-Public Use
  Company Number: 188519

PATIENT
  Age: 55 Year
  Sex: Female

DRUGS (7)
  1. AVONEX [Suspect]
     Indication: MULTIPLE SCLEROSIS
     Dosage: 30 MCG QW IM
     Route: 030
     Dates: start: 19970101
  2. SYNTHROID [Concomitant]
  3. PRILOSEC [Concomitant]
  4. CLONAZEPAM [Concomitant]
  5. LORTAB [Concomitant]
  6. PROZAC [Concomitant]
  7. ZOCOR [Concomitant]

REACTIONS (1)
  - BRONCHITIS [None]
